FAERS Safety Report 20979238 (Version 1)
Quarter: 2022Q2

REPORT INFORMATION
  Report Type: Spontaneous
  Country: CN (occurrence: CN)
  Receive Date: 20220620
  Receipt Date: 20220620
  Transmission Date: 20220721
  Serious: Yes (Other)
  Sender: FDA-Public Use
  Company Number: CN-BAYER-2022A084398

PATIENT
  Age: 82 Year
  Sex: Male

DRUGS (2)
  1. EYLEA [Suspect]
     Active Substance: AFLIBERCEPT
     Indication: Neovascular age-related macular degeneration
     Dosage: UNK, ONCE, SOLUTION FOR INJECTION
     Route: 031
     Dates: start: 20220508, end: 20220508
  2. EYLEA [Suspect]
     Active Substance: AFLIBERCEPT
     Dosage: UNK, ONCE, SOLUTION FOR INJECTION
     Route: 031
     Dates: start: 20220608, end: 20220608

REACTIONS (9)
  - Visual impairment [Unknown]
  - Anterior chamber disorder [Unknown]
  - Vitreous opacities [Unknown]
  - Retinal haemorrhage [Unknown]
  - Visual impairment [Unknown]
  - Anterior chamber flare [Unknown]
  - Endophthalmitis [Unknown]
  - Lenticular opacities [Unknown]
  - Eye pain [Unknown]

NARRATIVE: CASE EVENT DATE: 20220608
